FAERS Safety Report 7774976-9 (Version None)
Quarter: 2011Q3

REPORT INFORMATION
  Report Type: 
  Country: None (occurrence: None)
  Receive Date: 20110923
  Receipt Date: 20110921
  Transmission Date: 20111222
  Serious: Yes (Other)
  Sender: FDA-Public Use
  Company Number: SE-ROCHE-800965

PATIENT
  Age: 67 Year
  Sex: Female
  Weight: 68.5 kg

DRUGS (3)
  1. METOPROLOL SUCCINATE [Concomitant]
     Dates: start: 20000101
  2. FELODIPINE [Concomitant]
     Dates: start: 20000101
  3. VEMURAFENIB [Suspect]
     Route: 048
     Dates: start: 20110330

REACTIONS (1)
  - SKIN LESION [None]
